FAERS Safety Report 5685786 (Version 4)
Quarter: 2015Q4

REPORT INFORMATION
  Report Type: Spontaneous
  Country: US (occurrence: US)
  Receive Date: 20041025
  Receipt Date: 20151215
  Transmission Date: 20160305
  Serious: Yes (Other)
  Sender: FDA-Public Use
  Company Number: US-JNJFOC-20040803611

PATIENT
  Age: 71 Year
  Sex: Male

DRUGS (12)
  1. REMICADE [Suspect]
     Active Substance: INFLIXIMAB
     Indication: PSORIATIC ARTHROPATHY
     Route: 042
     Dates: start: 2002
  2. REMICADE [Suspect]
     Active Substance: INFLIXIMAB
     Indication: PSORIATIC ARTHROPATHY
     Route: 042
     Dates: start: 20040811
  3. BLOOD PRESSURE MEDICATION [Concomitant]
     Active Substance: UNSPECIFIED INGREDIENT
  4. COUMADIN [Concomitant]
     Active Substance: WARFARIN SODIUM
  5. PROTONIX [Concomitant]
     Active Substance: PANTOPRAZOLE SODIUM
  6. TRILISATE [Concomitant]
  7. METHOTREXATE [Concomitant]
     Active Substance: METHOTREXATE
  8. FOLIC ACID. [Concomitant]
     Active Substance: FOLIC ACID
  9. PAXIL [Concomitant]
     Active Substance: PAROXETINE HYDROCHLORIDE
  10. REMICADE [Suspect]
     Active Substance: INFLIXIMAB
     Indication: PSORIATIC ARTHROPATHY
     Route: 042
     Dates: start: 200308
  11. ASA [Concomitant]
     Active Substance: ASPIRIN
  12. CELEBREX [Concomitant]
     Active Substance: CELECOXIB

REACTIONS (8)
  - Infusion related reaction [Unknown]
  - Pallor [Unknown]
  - Peripheral coldness [Unknown]
  - Headache [Unknown]
  - Cerebrovascular accident [Unknown]
  - Vomiting [Unknown]
  - Nausea [Unknown]
  - Hypotension [Unknown]

NARRATIVE: CASE EVENT DATE: 20030826
